FAERS Safety Report 10358784 (Version 1)
Quarter: 2014Q3

REPORT INFORMATION
  Report Type: Spontaneous
  Country: PL (occurrence: PL)
  Receive Date: 20140804
  Receipt Date: 20140804
  Transmission Date: 20150326
  Serious: Yes (Hospitalization, Other)
  Sender: FDA-Public Use
  Company Number: PL-ROCHE-1444405

PATIENT
  Age: 21 Year
  Sex: Female

DRUGS (1)
  1. MABTHERA [Suspect]
     Active Substance: RITUXIMAB
     Indication: SYSTEMIC LUPUS ERYTHEMATOSUS
     Dosage: NEXT INFUSION ON 09/JUL/2014
     Route: 065
     Dates: start: 20140625

REACTIONS (3)
  - Thrombotic thrombocytopenic purpura [Unknown]
  - Off label use [Unknown]
  - Neurological symptom [Unknown]

NARRATIVE: CASE EVENT DATE: 20140719
